FAERS Safety Report 19869339 (Version 1)
Quarter: 2021Q3

REPORT INFORMATION
  Report Type: Report from Study
  Country: ES (occurrence: ES)
  Receive Date: 20210922
  Receipt Date: 20210922
  Transmission Date: 20211014
  Serious: Yes (Hospitalization, Other)
  Sender: FDA-Public Use
  Company Number: ES-PFIZER INC-202101240028

PATIENT
  Age: 53 Year
  Sex: Male
  Weight: 83 kg

DRUGS (4)
  1. ENCORAFENIB [Suspect]
     Active Substance: ENCORAFENIB
     Indication: MALIGNANT MELANOMA
     Dosage: 450 MG/ 24H
     Route: 065
     Dates: start: 20210824
  2. ENCORAFENIB [Suspect]
     Active Substance: ENCORAFENIB
     Dosage: 450 MG/24 H
     Route: 065
     Dates: start: 20210909
  3. BINIMETINIB [Suspect]
     Active Substance: BINIMETINIB
     Dosage: 45 MG/12H
     Route: 065
     Dates: start: 20210909
  4. BINIMETINIB [Suspect]
     Active Substance: BINIMETINIB
     Indication: MALIGNANT MELANOMA
     Dosage: 45 MG/12 H
     Route: 065
     Dates: start: 20210824

REACTIONS (1)
  - Pneumonia [Not Recovered/Not Resolved]

NARRATIVE: CASE EVENT DATE: 20210910
